FAERS Safety Report 20198328 (Version 2)
Quarter: 2021Q4

REPORT INFORMATION
  Report Type: Spontaneous
  Country: JP (occurrence: JP)
  Receive Date: 20211217
  Receipt Date: 20211223
  Transmission Date: 20220303
  Serious: Yes (Hospitalization, Other)
  Sender: FDA-Public Use
  Company Number: JP-GLAXOSMITHKLINE-JP2021JPN255490

PATIENT
  Age: 8 Decade
  Sex: Male
  Weight: 48 kg

DRUGS (1)
  1. VALTREX [Suspect]
     Active Substance: VALACYCLOVIR HYDROCHLORIDE
     Indication: Herpes zoster
     Dosage: 1000 MG, TID

REACTIONS (8)
  - Toxic encephalopathy [Unknown]
  - Herpes zoster meningitis [Unknown]
  - Encephalitis viral [Unknown]
  - Hallucination [Unknown]
  - Altered state of consciousness [Unknown]
  - Abnormal behaviour [Unknown]
  - Prescribed overdose [Unknown]
  - Inappropriate schedule of product administration [Unknown]
